FAERS Safety Report 18415278 (Version 1)
Quarter: 2020Q4

REPORT INFORMATION
  Report Type: Spontaneous
  Country: US (occurrence: US)
  Receive Date: 20201022
  Receipt Date: 20201022
  Transmission Date: 20210114
  Serious: Yes (Hospitalization)
  Sender: FDA-Public Use
  Company Number: None

PATIENT
  Age: 70 Year
  Sex: Male

DRUGS (2)
  1. OXALIPLATIN (OXALIPLATIN 100MG/VIL (PF) INJ) [Suspect]
     Active Substance: OXALIPLATIN
     Dosage: ?          OTHER STRENGTH:100MG/VIL;?
     Dates: start: 20200401
  2. LEUCOVORIN (LEUCOVORIN CALCIUM 100MG/VIL (PF) INJ) [Suspect]
     Active Substance: LEUCOVORIN CALCIUM
     Dosage: ?          OTHER STRENGTH:100MG/VIL;?
     Dates: start: 20200401

REACTIONS (7)
  - Syncope [None]
  - Dyspnoea [None]
  - Hypotension [None]
  - Sneezing [None]
  - Abdominal pain [None]
  - Anaphylactic reaction [None]
  - Infusion related reaction [None]

NARRATIVE: CASE EVENT DATE: 20200401
